FAERS Safety Report 6027812-5 (Version None)
Quarter: 2009Q1

REPORT INFORMATION
  Report Type: 
  Country: None (occurrence: None)
  Receive Date: 20090105
  Receipt Date: 20081230
  Transmission Date: 20090719
  Serious: Yes (Other)
  Sender: FDA-Public Use
  Company Number: US-B.I. PHARMACEUTICALS,INC./RIDGEFIELD-2008-BP-17086BP

PATIENT
  Age: 57 Year
  Sex: Female

DRUGS (11)
  1. SPIRIVA [Suspect]
     Indication: CHRONIC OBSTRUCTIVE PULMONARY DISEASE
     Dosage: 18MCG
     Route: 055
     Dates: start: 20071101, end: 20081115
  2. SPIRIVA [Suspect]
     Indication: EMPHYSEMA
  3. SPIRONOLACT [Concomitant]
     Indication: CARDIAC DISORDER
     Dosage: 25MG
     Route: 048
  4. LANOXIN [Concomitant]
     Dosage: .125MG
     Route: 048
  5. LISINOPRIL [Concomitant]
     Indication: CARDIAC DISORDER
     Dosage: 10MG
     Route: 048
  6. ZOLOFT [Concomitant]
     Indication: ANXIETY
     Dosage: 50MG
     Route: 048
  7. ASPIRIN [Concomitant]
  8. BIOFLAVONOID PRODUCTS [Concomitant]
  9. CALTRATE 600 PLUS VIT D [Concomitant]
  10. CARVEDILOL [Concomitant]
  11. FUROSEMIDE 40MG (LASIX) [Concomitant]
     Dates: start: 20080725

REACTIONS (3)
  - CHEST PAIN [None]
  - DIZZINESS [None]
  - DYSPNOEA [None]
